FAERS Safety Report 11201527 (Version 1)
Quarter: 2015Q2

REPORT INFORMATION
  Report Type: Spontaneous
  Country: US (occurrence: None)
  Receive Date: 20150617
  Receipt Date: 20150617
  Transmission Date: 20150821
  Serious: Yes (Hospitalization)
  Sender: FDA-Public Use
  Company Number: None

PATIENT
  Age: 80 Year
  Sex: Male
  Weight: 115.21 kg

DRUGS (2)
  1. WARFARIN [Suspect]
     Active Substance: WARFARIN
     Dosage: 7.5 MG, M, W, F, 5 MG ROW MG
     Route: 048
     Dates: start: 20100114, end: 20100206
  2. ASPIRIN. [Suspect]
     Active Substance: ASPIRIN
     Route: 048
     Dates: start: 20080101, end: 20100114

REACTIONS (4)
  - Subdural haematoma [None]
  - Fall [None]
  - Head injury [None]
  - Headache [None]

NARRATIVE: CASE EVENT DATE: 20100114
